FAERS Safety Report 25831536 (Version 1)
Quarter: 2025Q3

REPORT INFORMATION
  Report Type: Spontaneous
  Country: US (occurrence: None)
  Receive Date: 20250919
  Receipt Date: 20250919
  Transmission Date: 20251020
  Serious: Yes (Hospitalization)
  Sender: FDA-CTU
  Company Number: None

PATIENT
  Sex: Female

DRUGS (3)
  1. ADAKVEO [Suspect]
     Active Substance: CRIZANLIZUMAB-TMCA
     Indication: Haemochromatosis
     Dosage: OTHER FREQUENCY : EVERY 4 WEEKS;?
     Route: 042
     Dates: start: 20240212
  2. ADAKVEO [Concomitant]
     Active Substance: CRIZANLIZUMAB-TMCA
  3. FAMOTIDINE SDV (2ML/VL) [Concomitant]

REACTIONS (1)
  - Seizure [None]
